FAERS Safety Report 8888435 (Version 3)
Quarter: 2013Q1

REPORT INFORMATION
  Report Type: Spontaneous
  Country: US (occurrence: US)
  Receive Date: 20121106
  Receipt Date: 20130109
  Transmission Date: 20140127
  Serious: Yes (Other)
  Sender: FDA-Public Use
  Company Number: US-BAYER-2012-115020

PATIENT
  Age: 54 Year
  Sex: Male
  Weight: 86.17 kg

DRUGS (2)
  1. ALEVE CAPLET/TABLET,MIDOL EXTENDED RELIEF CAPLET [Suspect]
     Indication: BACK PAIN
     Dosage: 1 DF, PRN
     Route: 048
     Dates: start: 201107
  2. BAYER ASPIRIN REGIMEN ADULT LOW STRENGTH [Suspect]
     Indication: SERUM FERRITIN INCREASED
     Dosage: 1 DF, QD
     Dates: start: 2012

REACTIONS (10)
  - Pseudoporphyria [Recovering/Resolving]
  - Blister [Recovering/Resolving]
  - Serum ferritin increased [Recovering/Resolving]
  - Fatigue [Recovering/Resolving]
  - Photophobia [Recovering/Resolving]
  - Off label use [None]
  - Stress [None]
  - Emotional distress [None]
  - Pain [None]
  - Photosensitivity reaction [None]
